FAERS Safety Report 18865822 (Version 4)
Quarter: 2023Q2

REPORT INFORMATION
  Report Type: Spontaneous
  Country: US (occurrence: US)
  Receive Date: 20210208
  Receipt Date: 20230523
  Transmission Date: 20230722
  Serious: No
  Sender: FDA-Public Use
  Company Number: US-PFIZER INC-2021108944

PATIENT
  Age: 58 Year
  Sex: Female

DRUGS (1)
  1. XELJANZ XR [Suspect]
     Active Substance: TOFACITINIB CITRATE
     Dosage: 11 MG,UNK

REACTIONS (6)
  - Sensitivity to weather change [Unknown]
  - Pain [Unknown]
  - Condition aggravated [Unknown]
  - Inflammation [Unknown]
  - Memory impairment [Unknown]
  - Product dose omission in error [Unknown]
